FAERS Safety Report 9088319 (Version 1)
Quarter: 2013Q1

REPORT INFORMATION
  Report Type: Report from Study
  Country: US (occurrence: US)
  Receive Date: 20130130
  Receipt Date: 20130130
  Transmission Date: 20140127
  Serious: No
  Sender: FDA-Public Use
  Company Number: US-ABBOTT-12P-163-0952946-00

PATIENT
  Age: 18 Year
  Sex: Female

DRUGS (2)
  1. HUMIRA 40 MG/0.8 ML PEN [Suspect]
     Indication: PSORIASIS
     Dates: start: 20120405
  2. UNKNOWN MEDICATION [Concomitant]
     Indication: CONTRACEPTION
     Dosage: PILL BY MOUTH DAILY

REACTIONS (1)
  - Injection site pain [Recovered/Resolved]
